FAERS Safety Report 6264781-7 (Version None)
Quarter: 2009Q3

REPORT INFORMATION
  Report Type: 
  Country: None (occurrence: None)
  Receive Date: 20090710
  Receipt Date: 20090708
  Transmission Date: 20100115
  Serious: Yes (Hospitalization)
  Sender: FDA-Public Use
  Company Number: FR-BRISTOL-MYERS SQUIBB COMPANY-14677637

PATIENT
  Age: 74 Year
  Sex: Female

DRUGS (4)
  1. ELISOR TABS 20 MG [Suspect]
     Indication: HYPERCHOLESTEROLAEMIA
     Route: 048
     Dates: start: 20081213
  2. GLUCOPHAGE [Suspect]
     Indication: TYPE 2 DIABETES MELLITUS
     Route: 048
     Dates: start: 20081213
  3. DEPAKOTE [Suspect]
     Dosage: 500 MG GITS TABS FRM 23DEC08-08JAN09(2WK,3DY);DOSE DECRSD TO 250 MG FRM 09JAN09-16FEB09(5WK,4DY).
     Route: 048
     Dates: start: 20081223, end: 20090216
  4. GLUCOR [Suspect]
     Indication: TYPE 2 DIABETES MELLITUS
     Route: 048
     Dates: start: 20081213, end: 20090323

REACTIONS (1)
  - THROMBOCYTOPENIA [None]
